FAERS Safety Report 18818101 (Version 1)
Quarter: 2021Q1

REPORT INFORMATION
  Report Type: Report from Study
  Country: NZ (occurrence: NZ)
  Receive Date: 20210201
  Receipt Date: 20210201
  Transmission Date: 20210419
  Serious: Yes (Other)
  Sender: FDA-Public Use
  Company Number: NVSC2021NZ019591

PATIENT
  Age: 59 Year
  Sex: Female

DRUGS (1)
  1. COSENTYX [Suspect]
     Active Substance: SECUKINUMAB
     Indication: PSORIASIS
     Dosage: 300 MG, QW
     Route: 058
     Dates: start: 20210111

REACTIONS (4)
  - Oropharyngeal pain [Unknown]
  - Respiratory tract infection [Unknown]
  - Upper-airway cough syndrome [Unknown]
  - Headache [Unknown]

NARRATIVE: CASE EVENT DATE: 20210124
